FAERS Safety Report 6229732-X (Version None)
Quarter: 2009Q2

REPORT INFORMATION
  Report Type: 
  Country: None (occurrence: None)
  Receive Date: 20090615
  Receipt Date: 20090609
  Transmission Date: 20091009
  Serious: No
  Sender: FDA-Public Use
  Company Number: US-B.I. PHARMACEUTICALS,INC./RIDGEFIELD-2009-BP-06289BP

PATIENT
  Sex: Male

DRUGS (1)
  1. ZANTAC 150 [Suspect]
     Indication: DYSPEPSIA

REACTIONS (1)
  - DRUG INEFFECTIVE [None]
